FAERS Safety Report 16012045 (Version 5)
Quarter: 2022Q3

REPORT INFORMATION
  Report Type: Spontaneous
  Country: DE (occurrence: DE)
  Receive Date: 20190227
  Receipt Date: 20220720
  Transmission Date: 20221026
  Serious: Yes (Hospitalization, Other)
  Sender: FDA-Public Use
  Company Number: PHHY2018DE172990

PATIENT
  Age: 61 Year
  Sex: Female

DRUGS (2)
  1. METHOTREXATE [Suspect]
     Active Substance: METHOTREXATE
     Indication: Rheumatoid arthritis
     Dosage: 17.5 MG, QW
     Route: 065
  2. ORENCIA [Suspect]
     Active Substance: ABATACEPT
     Indication: Rheumatoid arthritis
     Dosage: 125 MG, QW
     Route: 058

REACTIONS (14)
  - Clavicle fracture [Not Recovered/Not Resolved]
  - Spondylolisthesis [Recovered/Resolved]
  - Facet joint syndrome [Recovered/Resolved]
  - Spinal stenosis [Recovered/Resolved]
  - Pain [Unknown]
  - Sciatica [Recovered/Resolved]
  - Tendon rupture [Recovered/Resolved]
  - Chondropathy [Not Recovered/Not Resolved]
  - Oral herpes [Recovered/Resolved]
  - Impaired healing [Not Recovered/Not Resolved]
  - Urinary tract infection [Recovered/Resolved]
  - Sinusitis [Unknown]
  - Gastrointestinal infection [Recovered/Resolved]
  - Depression [Not Recovered/Not Resolved]

NARRATIVE: CASE EVENT DATE: 20171215
